FAERS Safety Report 7810484-4 (Version None)
Quarter: 2011Q4

REPORT INFORMATION
  Report Type: 
  Country: None (occurrence: None)
  Receive Date: 20111012
  Receipt Date: 20111003
  Transmission Date: 20120403
  Serious: Yes (Other)
  Sender: FDA-Public Use
  Company Number: US-ASTRAZENECA-2011SE10159

PATIENT
  Age: 54 Year
  Sex: Female
  Weight: 68 kg

DRUGS (16)
  1. ZOCOR [Concomitant]
     Indication: HYPERCHOLESTEROLAEMIA
     Route: 048
  2. SEVELLA TITRATE [Concomitant]
     Dosage: 50 MG, 2 DAILY
  3. AMBIEN [Concomitant]
  4. SEROQUEL XR [Suspect]
     Route: 048
     Dates: start: 20011101
  5. LISINOPRIL [Concomitant]
     Indication: HYPERTENSION
     Route: 048
  6. EFFEXOR [Concomitant]
  7. HYDROXYZINE [Concomitant]
  8. SEROQUEL XR [Suspect]
     Indication: BIPOLAR DISORDER
     Route: 048
     Dates: start: 20070101
  9. SEROQUEL XR [Suspect]
     Route: 048
  10. NEXIUM [Concomitant]
     Route: 048
  11. CLONAZEPAM [Concomitant]
  12. SEVELLA TITRATE [Concomitant]
     Dosage: TOTAL DAILY DOSE 25MG, BID
     Route: 048
  13. HYDROCHLOROTHIAZIDE [Concomitant]
     Indication: HYPERTENSION
     Route: 048
  14. LAMICTAL [Concomitant]
  15. BATRANS [Concomitant]
     Dosage: TOTAL DAILY DOSE 20MCG, Q1H
     Route: 061
  16. PRILOSEC [Suspect]
     Route: 048

REACTIONS (3)
  - DRUG INEFFECTIVE [None]
  - NEUROPATHY PERIPHERAL [None]
  - LIMB DISCOMFORT [None]
